FAERS Safety Report 9064142 (Version 1)
Quarter: 2013Q1

REPORT INFORMATION
  Report Type: Spontaneous
  Country: US (occurrence: US)
  Receive Date: 20130128
  Receipt Date: 20130128
  Transmission Date: 20140127
  Serious: No
  Sender: FDA-Public Use
  Company Number: US-MYLANLABS-2012S1022257

PATIENT
  Age: 14 Year
  Sex: Female
  Weight: 51.71 kg

DRUGS (3)
  1. CLONIDINE TRANSDERMAL SYSTEM [Suspect]
     Indication: PAIN
     Dosage: CHANGED QW
     Route: 062
     Dates: start: 201205
  2. CLONIDINE TRANSDERMAL SYSTEM [Suspect]
     Indication: OFF LABEL USE
     Dosage: CHANGED QW
     Route: 062
     Dates: start: 201205
  3. SOLUTIONS FOR PARENTERAL NUTRITION [Concomitant]
     Indication: GASTROENTERITIS

REACTIONS (1)
  - Application site erythema [Not Recovered/Not Resolved]
